FAERS Safety Report 6829486-X (Version None)
Quarter: 2010Q3

REPORT INFORMATION
  Report Type: 
  Country: None (occurrence: None)
  Receive Date: 20100709
  Receipt Date: 20070321
  Transmission Date: 20110219
  Serious: Yes (Other)
  Sender: FDA-Public Use
  Company Number: US-PFIZER INC-2007008080

PATIENT
  Sex: Female
  Weight: 84.8 kg

DRUGS (6)
  1. CHANTIX [Suspect]
     Indication: SMOKING CESSATION THERAPY
     Route: 065
     Dates: start: 20060101
  2. VALIUM [Concomitant]
     Route: 065
  3. HALDOL [Concomitant]
     Route: 065
  4. HALDOL [Concomitant]
     Route: 065
  5. INSULIN [Concomitant]
     Route: 065
  6. HYDROCODONE BITARTRATE [Concomitant]
     Route: 065

REACTIONS (3)
  - BLOOD CHOLESTEROL INCREASED [None]
  - DRUG WITHDRAWAL SYNDROME [None]
  - VIOLENCE-RELATED SYMPTOM [None]
